FAERS Safety Report 13021413 (Version 1)
Quarter: 2016Q4

REPORT INFORMATION
  Report Type: Spontaneous
  Country: TR (occurrence: TR)
  Receive Date: 20161213
  Receipt Date: 20161213
  Transmission Date: 20170207
  Serious: Yes (Hospitalization)
  Sender: FDA-Public Use
  Company Number: TR-ACCORD-046441

PATIENT
  Age: 15 Day

DRUGS (1)
  1. AMITRIPTYLINE [Suspect]
     Active Substance: AMITRIPTYLINE
     Indication: INSOMNIA
     Dosage: LOW DOSE
     Route: 063

REACTIONS (3)
  - Sedation [Recovered/Resolved]
  - Exposure during breast feeding [Unknown]
  - Poor feeding infant [Recovered/Resolved]
